FAERS Safety Report 8535190-2 (Version None)
Quarter: 2012Q3

REPORT INFORMATION
  Report Type: 
  Country: None (occurrence: None)
  Receive Date: 20120724
  Receipt Date: 20120710
  Transmission Date: 20120928
  Serious: Yes (Other)
  Sender: FDA-Public Use
  Company Number: CHPA2012US009926

PATIENT
  Age: 66 Year
  Sex: Female

DRUGS (3)
  1. EXCEDRIN (MIGRAINE) [Suspect]
     Indication: BACK PAIN
     Dosage: 1 OR 2 DF, PRN
     Route: 048
  2. EXCEDRIN TENSION HEADACHE CAPLETS [Suspect]
     Indication: BACK PAIN
     Dosage: 1 OR 2 DF, PRN
     Route: 048
     Dates: start: 20020101
  3. OXYCODONE HCL [Concomitant]

REACTIONS (5)
  - MUSCULOSKELETAL PAIN [None]
  - INTRACRANIAL ANEURYSM [None]
  - UNDERDOSE [None]
  - BACK PAIN [None]
  - SYSTEMIC LUPUS ERYTHEMATOSUS [None]
